FAERS Safety Report 4995822-2 (Version None)
Quarter: 2006Q2

REPORT INFORMATION
  Report Type: 
  Country: None (occurrence: None)
  Receive Date: 20060504
  Receipt Date: 20060424
  Transmission Date: 20061013
  Serious: Yes (Death, Hospitalization)
  Sender: FDA-Public Use
  Company Number: 2006-00747

PATIENT
  Age: 65 Year
  Sex: Female
  Weight: 82 kg

DRUGS (1)
  1. VELCADE [Suspect]
     Indication: MULTIPLE MYELOMA
     Dosage: 2.40 MG, UNK, INTRAVENOUS
     Route: 042
     Dates: start: 20050127, end: 20050404

REACTIONS (4)
  - INFECTION [None]
  - MALIGNANT NEOPLASM PROGRESSION [None]
  - MULTIPLE MYELOMA [None]
  - PYREXIA [None]
